FAERS Safety Report 9462497 (Version 1)
Quarter: 2013Q3

REPORT INFORMATION
  Report Type: Spontaneous
  Country: US (occurrence: None)
  Receive Date: 20130815
  Receipt Date: 20130815
  Transmission Date: 20140515
  Serious: No
  Sender: FDA-Public Use
  Company Number: None

PATIENT
  Age: 57 Year
  Sex: Female

DRUGS (16)
  1. LETAIRIS [Suspect]
     Indication: PULMONARY ARTERIAL HYPERTENSION
     Route: 048
     Dates: start: 20130701, end: 20130712
  2. OMEPRAZOLE [Concomitant]
  3. LEVOTHYROXINE [Concomitant]
  4. ALENDRONATE [Concomitant]
  5. PHOSPHA NEUTRAL [Concomitant]
  6. SERTRALINE [Concomitant]
  7. TRAZODONE [Concomitant]
  8. SLIDENAFIL [Concomitant]
  9. WARFARIN [Concomitant]
  10. FUROSEMIDE [Concomitant]
  11. SPIRONOLACTONE [Concomitant]
  12. PREDNISONE [Concomitant]
  13. AMLODIPINE [Concomitant]
  14. GLIPIZIDE [Concomitant]
  15. INSULIN [Concomitant]
  16. PRAVASTATIN [Concomitant]

REACTIONS (6)
  - Local swelling [None]
  - Headache [None]
  - Conjunctival haemorrhage [None]
  - Flushing [None]
  - Myalgia [None]
  - Arthralgia [None]
